FAERS Safety Report 18115349 (Version 1)
Quarter: 2020Q3

REPORT INFORMATION
  Report Type: Spontaneous
  Country: MY (occurrence: MY)
  Receive Date: 20200805
  Receipt Date: 20200805
  Transmission Date: 20201103
  Serious: Yes (Death)
  Sender: FDA-Public Use
  Company Number: MY-FRESENIUS KABI-FK202008028

PATIENT
  Age: 65 Year
  Sex: Female

DRUGS (1)
  1. MICAFUNGIN (MANUFACTURER UNKOWN) [Suspect]
     Active Substance: MICAFUNGIN
     Indication: CANDIDA INFECTION
     Route: 042

REACTIONS (1)
  - Haematochezia [Fatal]
